FAERS Safety Report 4353790-0 (Version None)
Quarter: 2004Q2

REPORT INFORMATION
  Report Type: 
  Country: None (occurrence: None)
  Receive Date: 20040429
  Receipt Date: 20030507
  Transmission Date: 20050107
  Serious: Yes (Other)
  Sender: FDA-Public Use
  Company Number: 1672854A

PATIENT
  Age: 18 Month
  Sex: Female
  Weight: 16.7831 kg

DRUGS (2)
  1. IMODIUM A-D [Suspect]
     Indication: DIARRHOEA
     Dosage: 1MG, ONCE, PO
     Route: 048
     Dates: start: 20030506
  2. ZITHROMAX [Concomitant]

REACTIONS (2)
  - DRUG INEFFECTIVE [None]
  - OVERDOSE [None]
